FAERS Safety Report 4302771-1 (Version None)
Quarter: 2004Q1

REPORT INFORMATION
  Report Type: 
  Country: None (occurrence: None)
  Receive Date: 20040224
  Receipt Date: 20031107
  Transmission Date: 20041129
  Serious: No
  Sender: FDA-Public Use
  Company Number: US-BRISTOL-MYERS SQUIBB COMPANY-12430799

PATIENT
  Age: 39 Year
  Sex: Female
  Weight: 109 kg

DRUGS (1)
  1. KENALOG-10 [Suspect]
     Indication: CYST
     Dates: start: 20030101, end: 20030101

REACTIONS (2)
  - BURNING SENSATION [None]
  - PIGMENTATION DISORDER [None]
